FAERS Safety Report 7364400-2 (Version None)
Quarter: 2011Q1

REPORT INFORMATION
  Report Type: 
  Country: None (occurrence: None)
  Receive Date: 20110321
  Receipt Date: 20110310
  Transmission Date: 20110831
  Serious: Yes (Other)
  Sender: FDA-Public Use
  Company Number: GB-JNJFOC-20110200036

PATIENT
  Sex: Male
  Weight: 117 kg

DRUGS (5)
  1. SALBUTAMOL INHALER [Concomitant]
     Indication: ASTHMA
     Route: 065
  2. BECOTIDE INHALER [Concomitant]
     Indication: ASTHMA
     Route: 065
  3. USTEKINUMAB [Suspect]
     Indication: PSORIASIS
     Route: 058
  4. ASPIRIN [Concomitant]
     Indication: PRODUCT USED FOR UNKNOWN INDICATION
     Route: 065
  5. AMITRIPTYLINE [Concomitant]
     Indication: PRODUCT USED FOR UNKNOWN INDICATION
     Route: 065

REACTIONS (4)
  - CARPAL TUNNEL SYNDROME [None]
  - WEIGHT INCREASED [None]
  - HUNGER [None]
  - INCREASED APPETITE [None]
